FAERS Safety Report 8535497-9 (Version None)
Quarter: 2012Q3

REPORT INFORMATION
  Report Type: 
  Country: None (occurrence: None)
  Receive Date: 20120718
  Receipt Date: 20120718
  Transmission Date: 20120928
  Serious: Yes (Other)
  Sender: FDA-Public Use
  Company Number: None

PATIENT
  Sex: Male

DRUGS (7)
  1. AMLODIPINE [Concomitant]
  2. LISINOPRIL [Concomitant]
  3. CITALOPRAM HYDROBROMIDE [Concomitant]
  4. CLOPIDOGREL [Suspect]
     Indication: ANTICOAGULANT THERAPY
     Dosage: 75 MG ONCE A DAY PO
     Route: 048
     Dates: start: 20120612, end: 20120717
  5. METOPROLOL TARTRATE [Concomitant]
  6. SIMVASTATIN [Concomitant]
  7. CLONAZEPAM [Concomitant]

REACTIONS (7)
  - CONFUSIONAL STATE [None]
  - FATIGUE [None]
  - SPEECH DISORDER [None]
  - PRODUCT SUBSTITUTION ISSUE [None]
  - DIARRHOEA [None]
  - HYPOAESTHESIA [None]
  - HYPERSOMNIA [None]
